FAERS Safety Report 8305943-4 (Version None)
Quarter: 2012Q1

REPORT INFORMATION
  Report Type: 
  Country: None (occurrence: None)
  Receive Date: 20120327
  Receipt Date: 20091113
  Transmission Date: 20120608
  Serious: Yes (Other)
  Sender: FDA-Public Use
  Company Number: PHEH2009US15529

PATIENT
  Age: 52 Year
  Sex: Male

DRUGS (6)
  1. GLEEVEC [Suspect]
     Indication: CHRONIC MYELOID LEUKAEMIA
     Dosage: 400 MG, QD, ORAL ; 200 MG, QD, ORAL ; 300 MG, QD, ORAL
     Route: 048
     Dates: start: 20090902
  2. GLEEVEC [Suspect]
     Indication: CHRONIC MYELOID LEUKAEMIA
     Dosage: 400 MG, QD, ORAL ; 200 MG, QD, ORAL ; 300 MG, QD, ORAL
     Route: 048
     Dates: start: 20091001
  3. SIMVASTATIN [Concomitant]
  4. DIAZEPAM [Concomitant]
  5. BACLOFEN [Concomitant]
  6. CIPROFLOXACIN [Concomitant]

REACTIONS (2)
  - THROMBOCYTOPENIA [None]
  - PLATELET COUNT DECREASED [None]
